FAERS Safety Report 18434073 (Version 1)
Quarter: 2020Q4

REPORT INFORMATION
  Report Type: Report from Study
  Country: US (occurrence: US)
  Receive Date: 20201027
  Receipt Date: 20201027
  Transmission Date: 20210114
  Serious: Yes (Other)
  Sender: FDA-Public Use
  Company Number: US-TAKEDA-US202025756

PATIENT
  Age: 65 Year
  Sex: Female

DRUGS (1)
  1. HUMAN NORMAL IMMUNOGLOBULIN; LIQUID 20 [Suspect]
     Active Substance: HUMAN IMMUNOGLOBULIN G
     Indication: PRIMARY IMMUNODEFICIENCY SYNDROME
     Dosage: 5 GRAM, 1X/WEEK
     Route: 065

REACTIONS (8)
  - Abdominal distension [Recovering/Resolving]
  - COVID-19 [Unknown]
  - Contusion [Unknown]
  - Feeling abnormal [Recovering/Resolving]
  - Otorrhoea [Recovering/Resolving]
  - Swelling [Unknown]
  - Somnolence [Unknown]
  - Infusion site pain [Recovering/Resolving]

NARRATIVE: CASE EVENT DATE: 20200930
